FAERS Safety Report 6803472-8 (Version None)
Quarter: 2010Q2

REPORT INFORMATION
  Report Type: 
  Country: None (occurrence: None)
  Receive Date: 20100628
  Receipt Date: 20100531
  Transmission Date: 20101027
  Serious: Yes (Life-Threatening)
  Sender: FDA-Public Use
  Company Number: GXKR2010DK05980

PATIENT
  Sex: Female

DRUGS (4)
  1. MIRTAZAPINE [Suspect]
     Indication: DEPRESSION
     Route: 048
     Dates: end: 20100525
  2. CENTYL MED KALIUMKLORID [Interacting]
     Indication: HYPERTENSION
     Dosage: UNK
     Route: 048
     Dates: start: 20070101, end: 20100525
  3. ESCITALOPRAM [Interacting]
     Indication: DEPRESSION
     Route: 048
     Dates: end: 20100525
  4. SEROQUEL [Concomitant]
     Indication: DEPRESSION
     Dosage: 25 MILLIGRAM(S)
     Route: 048
     Dates: end: 20100525

REACTIONS (2)
  - BLOOD SODIUM DECREASED [None]
  - DRUG INTERACTION [None]
